FAERS Safety Report 17686893 (Version 2)
Quarter: 2021Q2

REPORT INFORMATION
  Report Type: Spontaneous
  Country: US (occurrence: US)
  Receive Date: 20200421
  Receipt Date: 20210416
  Transmission Date: 20210716
  Serious: Yes (Hospitalization, Other)
  Sender: FDA-Public Use
  Company Number: US-ASTRAZENECA-2020SE51304

PATIENT
  Age: 19294 Day
  Sex: Male
  Weight: 114.8 kg

DRUGS (39)
  1. GABAPENTIN. [Concomitant]
     Active Substance: GABAPENTIN
  2. FUROSEMIDE. [Concomitant]
     Active Substance: FUROSEMIDE
  3. URSODIOL. [Concomitant]
     Active Substance: URSODIOL
  4. TYLENOL [Concomitant]
     Active Substance: ACETAMINOPHEN
  5. ZOCOR [Concomitant]
     Active Substance: SIMVASTATIN
  6. POLYETHYLENE GLYCOL [Concomitant]
     Active Substance: POLYETHYLENE GLYCOLS
  7. GENTAMICIN. [Concomitant]
     Active Substance: GENTAMICIN
  8. PAROXETINE. [Concomitant]
     Active Substance: PAROXETINE
  9. POTASSIUM CHLORIDE. [Concomitant]
     Active Substance: POTASSIUM CHLORIDE
  10. NEXIUM [Suspect]
     Active Substance: ESOMEPRAZOLE MAGNESIUM
     Route: 048
     Dates: start: 20150416
  11. CARVEDILOL. [Concomitant]
     Active Substance: CARVEDILOL
  12. LOVASTATIN. [Concomitant]
     Active Substance: LOVASTATIN
  13. VITAMIN D2 [Concomitant]
     Active Substance: ERGOCALCIFEROL
  14. FISH OIL [Concomitant]
     Active Substance: FISH OIL
  15. PROTONIX [Concomitant]
     Active Substance: PANTOPRAZOLE SODIUM
     Route: 048
  16. IMDUR [Concomitant]
     Active Substance: ISOSORBIDE MONONITRATE
  17. EFFIENT [Concomitant]
     Active Substance: PRASUGREL HYDROCHLORIDE
  18. BIDIL [Concomitant]
     Active Substance: HYDRALAZINE HYDROCHLORIDE\ISOSORBIDE DINITRATE
  19. PAXIL [Concomitant]
     Active Substance: PAROXETINE HYDROCHLORIDE
  20. AZITHROMYCIN ANHYDROUS. [Concomitant]
     Active Substance: AZITHROMYCIN ANHYDROUS
  21. NEXIUM [Suspect]
     Active Substance: ESOMEPRAZOLE MAGNESIUM
     Dosage: GENERIC, TABLET
     Route: 048
     Dates: start: 20150811
  22. RENVELA [Concomitant]
     Active Substance: SEVELAMER CARBONATE
  23. HUMALOG [Concomitant]
     Active Substance: INSULIN LISPRO
  24. METOLAZONE. [Concomitant]
     Active Substance: METOLAZONE
  25. FOSRENOL [Concomitant]
     Active Substance: LANTHANUM CARBONATE
  26. ACTOS [Concomitant]
     Active Substance: PIOGLITAZONE HYDROCHLORIDE
  27. RANOLAZINE. [Concomitant]
     Active Substance: RANOLAZINE
  28. LANTHANUM [Concomitant]
     Active Substance: LANTHANUM
  29. HYDRALAZINE [Concomitant]
     Active Substance: HYDRALAZINE HYDROCHLORIDE
  30. NITROSTAT [Concomitant]
     Active Substance: NITROGLYCERIN
  31. LANTUS [Concomitant]
     Active Substance: INSULIN GLARGINE
  32. HEPARIN [Concomitant]
     Active Substance: HEPARIN SODIUM
  33. TUMS [Concomitant]
     Active Substance: CALCIUM CARBONATE
  34. NEXIUM [Suspect]
     Active Substance: ESOMEPRAZOLE MAGNESIUM
     Route: 048
     Dates: start: 200103, end: 201612
  35. ALLOPURINOL. [Concomitant]
     Active Substance: ALLOPURINOL
  36. TAMSULOSIN [Concomitant]
     Active Substance: TAMSULOSIN
  37. TEMAZEPAM. [Concomitant]
     Active Substance: TEMAZEPAM
  38. HYDROCODONE [Concomitant]
     Active Substance: HYDROCODONE
  39. SERTRALINE [Concomitant]
     Active Substance: SERTRALINE HYDROCHLORIDE

REACTIONS (7)
  - Chronic kidney disease-mineral and bone disorder [Unknown]
  - Renal failure [Unknown]
  - Chronic kidney disease [Unknown]
  - Hyperparathyroidism secondary [Unknown]
  - Nephrogenic anaemia [Unknown]
  - End stage renal disease [Unknown]
  - Acute kidney injury [Unknown]

NARRATIVE: CASE EVENT DATE: 20150317
